FAERS Safety Report 5141456-9 (Version None)
Quarter: 2006Q4

REPORT INFORMATION
  Report Type: 
  Country: None (occurrence: None)
  Receive Date: 20061101
  Receipt Date: 20061005
  Transmission Date: 20070319
  Serious: Yes (Hospitalization)
  Sender: FDA-Public Use
  Company Number: DE-BRISTOL-MYERS SQUIBB COMPANY-13535604

PATIENT
  Age: 49 Year
  Sex: Male

DRUGS (1)
  1. CETUXIMAB [Suspect]
     Indication: HEPATIC NEOPLASM MALIGNANT
     Route: 041
     Dates: start: 20060929, end: 20060929

REACTIONS (1)
  - ULCER HAEMORRHAGE [None]
